FAERS Safety Report 8839865 (Version 1)
Quarter: 2012Q4

REPORT INFORMATION
  Report Type: 
  Country: SE (occurrence: SE)
  Receive Date: 20121015
  Receipt Date: 20121015
  Transmission Date: 20130627
  Serious: Yes (Hospitalization, Other)
  Sender: FDA-Public Use
  Company Number: SE-PFIZER INC-2012254696

PATIENT
  Age: 76 Year
  Sex: Male

DRUGS (7)
  1. IPREN [Suspect]
     Indication: NECK PAIN
     Route: 065
  2. ENALAPRIL [Suspect]
     Route: 065
  3. METOPROLOL [Concomitant]
     Route: 065
  4. ATARAX [Concomitant]
     Route: 065
  5. TERRACORTRIL [Concomitant]
     Route: 065
  6. DIPYRIDAMOLE [Concomitant]
     Route: 065
  7. PROPYLENE GLYCOL [Concomitant]
     Route: 061

REACTIONS (5)
  - Renal failure acute [Recovered/Resolved]
  - Duodenal ulcer [Unknown]
  - Dehydration [Unknown]
  - Anaemia [Unknown]
  - Oesophagitis [Unknown]
